FAERS Safety Report 6418007-1 (Version None)
Quarter: 2009Q4

REPORT INFORMATION
  Report Type: 
  Country: None (occurrence: None)
  Receive Date: 20091028
  Receipt Date: 20091022
  Transmission Date: 20100525
  Serious: Yes (Other)
  Sender: FDA-Public Use
  Company Number: US-B.I. PHARMACEUTICALS,INC./RIDGEFIELD-2009-BP-11005BP

PATIENT
  Sex: Female
  Weight: 73.5 kg

DRUGS (1)
  1. MICARDIS [Suspect]
     Indication: HYPERTENSION
     Dates: start: 20090904, end: 20090907

REACTIONS (3)
  - DIARRHOEA [None]
  - HYPERHIDROSIS [None]
  - VOMITING [None]
